FAERS Safety Report 16427293 (Version 1)
Quarter: 2019Q2

REPORT INFORMATION
  Report Type: Spontaneous
  Country: CA (occurrence: CA)
  Receive Date: 20190613
  Receipt Date: 20190613
  Transmission Date: 20190711
  Serious: Yes (Other)
  Sender: FDA-Public Use
  Company Number: CA-009507513-1812CAN001212

PATIENT
  Age: 73 Year
  Sex: Male

DRUGS (1)
  1. ONCOTICE [Suspect]
     Active Substance: BACILLUS CALMETTE-GUERIN SUBSTRAIN TICE LIVE ANTIGEN
     Indication: BLADDER CANCER
     Dosage: 5 INSTALLATIONS
     Route: 043

REACTIONS (4)
  - Aortic aneurysm [Recovered/Resolved]
  - Pyrexia [Unknown]
  - Infective aneurysm [Recovered/Resolved]
  - Abdominal pain [Unknown]
